FAERS Safety Report 24526895 (Version 1)
Quarter: 2024Q4

REPORT INFORMATION
  Report Type: Other
  Country: GB (occurrence: GB)
  Receive Date: 20241021
  Receipt Date: 20241021
  Transmission Date: 20250115
  Serious: Yes (Other)
  Sender: GLENMARK
  Company Number: GB-GLENMARK PHARMACEUTICALS-2024GMK094855

PATIENT

DRUGS (5)
  1. MOMETASONE FUROATE [Suspect]
     Active Substance: MOMETASONE FUROATE
     Indication: Scab
     Dosage: UNK
     Route: 065
     Dates: start: 20230426, end: 20230620
  2. PROTOPIC [Suspect]
     Active Substance: TACROLIMUS
     Indication: Eczema
     Dosage: UNK
     Route: 065
     Dates: start: 20230426, end: 20231231
  3. PROTOPIC [Suspect]
     Active Substance: TACROLIMUS
     Indication: Scab
  4. ELOCON [Suspect]
     Active Substance: MOMETASONE FUROATE
     Indication: Scab
     Dosage: UNK
     Route: 065
     Dates: start: 20230621, end: 20231231
  5. HYDROCORTISONE [Concomitant]
     Active Substance: HYDROCORTISONE
     Indication: Product used for unknown indication
     Dosage: UNK
     Route: 065
     Dates: start: 19950101, end: 20231231

REACTIONS (7)
  - Topical steroid withdrawal reaction [Recovering/Resolving]
  - Skin exfoliation [Unknown]
  - Insomnia [Unknown]
  - Pruritus [Unknown]
  - Burning sensation [Unknown]
  - Medication error [Unknown]
  - Drug ineffective for unapproved indication [Unknown]

NARRATIVE: CASE EVENT DATE: 20231201
